FAERS Safety Report 9225647 (Version 1)
Quarter: 2013Q1

REPORT INFORMATION
  Report Type: Spontaneous
  Country: US (occurrence: None)
  Receive Date: 20120912
  Receipt Date: 20120912
  Transmission Date: 20140127
  Serious: No
  Sender: FDA-Public Use
  Company Number: 2012SP034572

PATIENT
  Age: 54 Year
  Sex: Male

DRUGS (11)
  1. VICTRELIS [Suspect]
     Indication: HEPATITIS C
     Route: 048
     Dates: start: 20120407
  2. RIBAVIRIN [Suspect]
     Indication: PRODUCT USED FOR UNKNOWN INDICATION
  3. PEGASYS [Suspect]
     Indication: PRODUCT USED FOR UNKNOWN INDICATION
  4. GEODON [Concomitant]
  5. TRAMADOL [Concomitant]
  6. NORCO [Concomitant]
  7. AMBIEN [Concomitant]
  8. SPIRIVA [Concomitant]
  9. RESTASIS [Concomitant]
  10. BENDARYL [Concomitant]
  11. LEVOXYL [Concomitant]

REACTIONS (1)
  - Dysgeusia [None]
